FAERS Safety Report 5444409-6 (Version None)
Quarter: 2007Q3

REPORT INFORMATION
  Report Type: 
  Country: None (occurrence: None)
  Receive Date: 20070906
  Receipt Date: 20070830
  Transmission Date: 20080115
  Serious: Yes (Other)
  Sender: FDA-Public Use
  Company Number: JP-ELI_LILLY_AND_COMPANY-JP200708002119

PATIENT
  Age: 70 Year
  Sex: Male
  Weight: 63.5 kg

DRUGS (4)
  1. PEMETREXED [Suspect]
     Indication: PLEURAL MESOTHELIOMA MALIGNANT
     Dosage: 500 MG/M2, OTHER
     Route: 042
     Dates: start: 20070726
  2. CISPLATIN [Suspect]
     Indication: PLEURAL MESOTHELIOMA MALIGNANT
     Dosage: 75 MG/M2, OTHER
     Route: 042
     Dates: start: 20070726
  3. PANVITAN [Concomitant]
     Indication: SUPPLEMENTATION THERAPY
     Dosage: 1 G, DAILY (1/D)
     Route: 048
  4. DECADRON [Concomitant]
     Dosage: 8 MG, DAILY (1/D)
     Route: 048

REACTIONS (1)
  - ULCER HAEMORRHAGE [None]
